FAERS Safety Report 8499601 (Version 3)
Quarter: 2013Q1

REPORT INFORMATION
  Report Type: Spontaneous
  Country: US (occurrence: US)
  Receive Date: 20120409
  Receipt Date: 20130131
  Transmission Date: 20140127
  Serious: Yes (Hospitalization)
  Sender: FDA-Public Use
  Company Number: US-BAYER-2012-031635

PATIENT
  Age: 19 Year
  Sex: Female

DRUGS (5)
  1. YASMIN [Suspect]
     Dosage: UNK
     Dates: start: 2004, end: 200505
  2. IBUPROFEN [Concomitant]
     Dosage: 800 MG, UNK
     Route: 048
  3. ZITHROMAX [Concomitant]
     Dosage: 250 MG, UNK
     Route: 048
  4. TYLENOL [Concomitant]
  5. COLACE [Concomitant]

REACTIONS (2)
  - Pulmonary embolism [None]
  - Deep vein thrombosis [None]
